FAERS Safety Report 17951887 (Version 1)
Quarter: 2020Q2

REPORT INFORMATION
  Report Type: Spontaneous
  Country: GB (occurrence: GB)
  Receive Date: 20200626
  Receipt Date: 20200626
  Transmission Date: 20200714
  Serious: Yes (Other)
  Sender: FDA-Public Use
  Company Number: NVSC2020GB179775

PATIENT
  Age: 35 Year
  Sex: Female
  Weight: 69 kg

DRUGS (1)
  1. LABETALOL [Suspect]
     Active Substance: LABETALOL\LABETALOL HYDROCHLORIDE
     Indication: HYPERTENSION
     Dosage: 200 MG
     Route: 048
     Dates: start: 20171023, end: 20181113

REACTIONS (6)
  - Autoimmune hepatitis [Unknown]
  - Abortion spontaneous [Unknown]
  - Arthralgia [Unknown]
  - Fatigue [Unknown]
  - Transaminases increased [Recovered/Resolved with Sequelae]
  - Maternal exposure during pregnancy [Unknown]

NARRATIVE: CASE EVENT DATE: 201805
